FAERS Safety Report 18395761 (Version 1)
Quarter: 2020Q4

REPORT INFORMATION
  Report Type: Spontaneous
  Country: MX (occurrence: MX)
  Receive Date: 20201018
  Receipt Date: 20201018
  Transmission Date: 20210114
  Serious: Yes (Death, Hospitalization, Other)
  Sender: FDA-Public Use
  Company Number: MX-LUPIN PHARMACEUTICALS INC.-2020-07242

PATIENT
  Age: 71 Year
  Sex: Female

DRUGS (8)
  1. DEXAMETHASONE. [Suspect]
     Active Substance: DEXAMETHASONE
     Indication: AMOEBIASIS
     Dosage: 8 MILLIGRAM, TID (EVERY 8 HOURS)
     Route: 042
     Dates: start: 2018
  2. CEFTRIAXONE. [Suspect]
     Active Substance: CEFTRIAXONE
     Indication: AMOEBIASIS
     Dosage: 2 GRAM, BID
     Route: 042
     Dates: start: 2018
  3. CEFTRIAXONE. [Suspect]
     Active Substance: CEFTRIAXONE
     Indication: CENTRAL NERVOUS SYSTEM INFECTION
  4. PREDNISOLONE. [Suspect]
     Active Substance: PREDNISOLONE
     Indication: CENTRAL NERVOUS SYSTEM INFECTION
  5. METRONIDAZOLE. [Suspect]
     Active Substance: METRONIDAZOLE
     Indication: AMOEBIASIS
     Dosage: 750 MILLIGRAM, TID
     Route: 042
     Dates: start: 2018
  6. DEXAMETHASONE. [Suspect]
     Active Substance: DEXAMETHASONE
     Indication: CENTRAL NERVOUS SYSTEM INFECTION
  7. METRONIDAZOLE. [Suspect]
     Active Substance: METRONIDAZOLE
     Indication: CENTRAL NERVOUS SYSTEM INFECTION
  8. PREDNISOLONE. [Suspect]
     Active Substance: PREDNISOLONE
     Indication: AMOEBIASIS
     Dosage: UNK
     Route: 065
     Dates: start: 2018

REACTIONS (4)
  - Central nervous system infection [Fatal]
  - Condition aggravated [Fatal]
  - Drug ineffective [Unknown]
  - Amoebiasis [Fatal]

NARRATIVE: CASE EVENT DATE: 20181014
